FAERS Safety Report 24956629 (Version 1)
Quarter: 2025Q1

REPORT INFORMATION
  Report Type: Spontaneous
  Country: CA (occurrence: CA)
  Receive Date: 20250211
  Receipt Date: 20250211
  Transmission Date: 20250409
  Serious: Yes (Other)
  Sender: MYLAN
  Company Number: CA-MYLANLABS-2025M1011646

PATIENT
  Age: 58 Year
  Sex: Male

DRUGS (11)
  1. SERTRALINE [Suspect]
     Active Substance: SERTRALINE HYDROCHLORIDE
     Indication: Product used for unknown indication
     Route: 065
  2. VALPROIC ACID [Suspect]
     Active Substance: VALPROIC ACID
     Indication: Product used for unknown indication
     Route: 065
  3. CITALOPRAM HYDROBROMIDE [Suspect]
     Active Substance: CITALOPRAM HYDROBROMIDE
     Indication: Product used for unknown indication
     Dosage: 10 MILLIGRAM, BID (2 EVERY 1 DAYS)
     Route: 048
  4. CLOMIPRAMINE [Suspect]
     Active Substance: CLOMIPRAMINE
     Indication: Obsessive-compulsive disorder
     Dosage: 100 MILLIGRAM, QD (1 EVERY 1 DAYS)
     Route: 048
  5. CLOMIPRAMINE [Suspect]
     Active Substance: CLOMIPRAMINE
     Dosage: 25 MILLIGRAM, QD (1 EVERY 1 DAYS)
     Route: 048
  6. ESCITALOPRAM OXALATE [Suspect]
     Active Substance: ESCITALOPRAM OXALATE
     Indication: Product used for unknown indication
     Dosage: 10 MILLIGRAM, QD (1 EVERY 1 DAYS)
     Route: 065
  7. HALOPERIDOL [Suspect]
     Active Substance: HALOPERIDOL
     Indication: Product used for unknown indication
     Dosage: 1 MILLIGRAM, QD (1 EVERY 1 DAYS)
     Route: 065
  8. OLANZAPINE [Suspect]
     Active Substance: OLANZAPINE
     Indication: Product used for unknown indication
     Dosage: 15 MILLIGRAM, QD ( 1 EVERY 1 DAYS)
     Route: 048
  9. PAROXETINE [Suspect]
     Active Substance: PAROXETINE
     Indication: Product used for unknown indication
     Dosage: UNK, QD (1 EVERY 1 DAYS)
     Route: 065
  10. QUETIAPINE FUMARATE [Suspect]
     Active Substance: QUETIAPINE FUMARATE
     Indication: Product used for unknown indication
     Dosage: 25 MILLIGRAM, QD (1 EVERY 1 DAYS)
     Route: 065
  11. TRAZODONE [Suspect]
     Active Substance: TRAZODONE HYDROCHLORIDE
     Indication: Product used for unknown indication
     Route: 065

REACTIONS (9)
  - Parkinsonism [Unknown]
  - Resting tremor [Unknown]
  - Bradykinesia [Unknown]
  - Cogwheel rigidity [Unknown]
  - Confusional state [Unknown]
  - Abdominal pain upper [Unknown]
  - Hyperhidrosis [Unknown]
  - Drug ineffective [Unknown]
  - Drug intolerance [Unknown]
